FAERS Safety Report 22008938 (Version 2)
Quarter: 2023Q2

REPORT INFORMATION
  Report Type: Report from Study
  Country: GB (occurrence: GB)
  Receive Date: 20230220
  Receipt Date: 20230413
  Transmission Date: 20230722
  Serious: Yes (Other)
  Sender: FDA-Public Use
  Company Number: GB-ABBVIE-22K-167-4528068-00

PATIENT
  Age: 24 Year
  Sex: Female
  Weight: 92.5 kg

DRUGS (2)
  1. SKYRIZI [Suspect]
     Active Substance: RISANKIZUMAB-RZAA
     Indication: Psoriasis
     Route: 058
     Dates: start: 20210104, end: 20220520
  2. FOLIC ACID [Concomitant]
     Active Substance: FOLIC ACID
     Indication: Product used for unknown indication
     Dates: start: 20191212, end: 20220704

REACTIONS (6)
  - Labour complication [Unknown]
  - Maternal exposure during pregnancy [Unknown]
  - Puerperal infection [Unknown]
  - Live birth [Unknown]
  - Gestational diabetes [Unknown]
  - Urinary tract infection [Unknown]

NARRATIVE: CASE EVENT DATE: 20221101
